FAERS Safety Report 6528482-X (Version None)
Quarter: 2010Q1

REPORT INFORMATION
  Report Type: 
  Country: None (occurrence: None)
  Receive Date: 20100106
  Receipt Date: 20091023
  Transmission Date: 20100710
  Serious: Yes (Death)
  Sender: FDA-Public Use
  Company Number: DK-SANOFI-AVENTIS-200920354GDDC

PATIENT

DRUGS (1)
  1. INSULIN GLARGINE [Suspect]
     Indication: BLOOD GLUCOSE ABNORMAL
     Route: 058

REACTIONS (1)
  - DEATH [None]
